FAERS Safety Report 4522721-2 (Version None)
Quarter: 2004Q4

REPORT INFORMATION
  Report Type: 
  Country: None (occurrence: None)
  Receive Date: 20041207
  Receipt Date: 20041124
  Transmission Date: 20050328
  Serious: No
  Sender: FDA-Public Use
  Company Number: EWC041141447

PATIENT
  Age: 80 Year
  Sex: Female

DRUGS (5)
  1. FORTEO [Suspect]
     Indication: OSTEOPOROSIS
     Dosage: 20 UG/1 DAY
     Dates: start: 20040927
  2. CALCIUM [Concomitant]
  3. IDEOS [Concomitant]
  4. SYMBICORT MITE TURBUHALER [Concomitant]
  5. VASONASE (NICARDIPINE HYDROCHLORIDE) [Concomitant]

REACTIONS (1)
  - ARRHYTHMIA [None]
